FAERS Safety Report 17996302 (Version 2)
Quarter: 2020Q3

REPORT INFORMATION
  Report Type: Spontaneous
  Country: DE (occurrence: DE)
  Receive Date: 20200708
  Receipt Date: 20200807
  Transmission Date: 20201103
  Serious: Yes (Other)
  Sender: FDA-Public Use
  Company Number: DE-TEVA-2020-DE-1797941

PATIENT
  Sex: Female

DRUGS (3)
  1. IBUPROFEN. [Suspect]
     Active Substance: IBUPROFEN
     Indication: SCIATICA
     Dosage: UNK
     Route: 065
  2. ARCOXIA [Suspect]
     Active Substance: ETORICOXIB
     Route: 048
     Dates: start: 2018
  3. ARCOXIA [Suspect]
     Active Substance: ETORICOXIB
     Indication: SPINAL DISORDER
     Dosage: ONCE
     Route: 048
     Dates: start: 20200216, end: 202002

REACTIONS (9)
  - Pain in extremity [Recovered/Resolved]
  - Bone contusion [Unknown]
  - Drug ineffective [Unknown]
  - Anaphylactic shock [Recovered/Resolved]
  - Dyspnoea [Unknown]
  - Joint swelling [Unknown]
  - Hypoaesthesia [Recovered/Resolved]
  - Pruritus [Unknown]
  - Sciatica [Recovered/Resolved]

NARRATIVE: CASE EVENT DATE: 2018
